FAERS Safety Report 8353701-7 (Version None)
Quarter: 2012Q2

REPORT INFORMATION
  Report Type: 
  Country: None (occurrence: None)
  Receive Date: 20120511
  Receipt Date: 20110822
  Transmission Date: 20120825
  Serious: No
  Sender: FDA-Public Use
  Company Number: US-GLAXOSMITHKLINE-A0943392A

PATIENT
  Age: 54 Year
  Sex: Female
  Weight: 54.5 kg

DRUGS (3)
  1. OXYCODONE HCL [Concomitant]
  2. TYKERB [Suspect]
     Indication: PRODUCT USED FOR UNKNOWN INDICATION
     Dosage: 1250MG PER DAY
     Route: 048
     Dates: start: 20110501
  3. NEXIUM [Concomitant]

REACTIONS (3)
  - BLOOD URINE PRESENT [None]
  - DYSPNOEA [None]
  - COUGH [None]
